FAERS Safety Report 14940482 (Version 1)
Quarter: 2018Q2

REPORT INFORMATION
  Report Type: Spontaneous
  Country: US (occurrence: US)
  Receive Date: 20180525
  Receipt Date: 20180525
  Transmission Date: 20180711
  Serious: Yes (Other)
  Sender: FDA-Public Use
  Company Number: US-COOPERSURGICAL, INC.-US-2018CPS031997

PATIENT

DRUGS (1)
  1. PARAGARD T 380A [Suspect]
     Active Substance: COPPER
     Indication: PRODUCT USED FOR UNKNOWN INDICATION
     Dosage: UNK
     Route: 015
     Dates: start: 201805

REACTIONS (6)
  - Cyst [Unknown]
  - Muscle spasms [Unknown]
  - Abdominal discomfort [Unknown]
  - Dysstasia [Unknown]
  - Hypoaesthesia [Unknown]
  - Pelvic pain [Unknown]

NARRATIVE: CASE EVENT DATE: 201805
